FAERS Safety Report 10948893 (Version 2)
Quarter: 2015Q2

REPORT INFORMATION
  Report Type: Spontaneous
  Country: US (occurrence: US)
  Receive Date: 20150324
  Receipt Date: 20150505
  Transmission Date: 20150821
  Serious: No
  Sender: FDA-Public Use
  Company Number: US-PFIZER INC-2015100690

PATIENT
  Age: 74 Year
  Sex: Female
  Weight: 51 kg

DRUGS (3)
  1. LATANOPROST. [Suspect]
     Active Substance: LATANOPROST
     Indication: GLAUCOMA
     Dosage: 1 DROP EACH EYE, DAILY
     Route: 047
     Dates: start: 2007, end: 2015
  2. LUMIGAN [Suspect]
     Active Substance: BIMATOPROST
     Indication: GLAUCOMA
     Dosage: 1 DROP EACH EYE, DAILY
     Route: 047
     Dates: end: 2015
  3. TIMOLOL [Concomitant]
     Active Substance: TIMOLOL
     Dosage: 1 DROP, DAILY (IN THE MORNING) IN EACH EYE
     Route: 047

REACTIONS (4)
  - Sleep disorder [Not Recovered/Not Resolved]
  - Headache [Recovering/Resolving]
  - Ocular hyperaemia [Recovering/Resolving]
  - Reaction to preservatives [Unknown]

NARRATIVE: CASE EVENT DATE: 201411
